FAERS Safety Report 25847703 (Version 1)
Quarter: 2025Q3

REPORT INFORMATION
  Report Type: Spontaneous
  Country: US (occurrence: US)
  Receive Date: 20250925
  Receipt Date: 20250925
  Transmission Date: 20251020
  Serious: Yes (Hospitalization, Other)
  Sender: Otter
  Company Number: US-OTTER-US-2025AST000468

PATIENT

DRUGS (3)
  1. METHOTREXATE [Suspect]
     Active Substance: METHOTREXATE
     Indication: T-cell type acute leukaemia
     Route: 065
  2. MERCAPTOPURINE [Suspect]
     Active Substance: MERCAPTOPURINE
     Indication: T-cell type acute leukaemia
     Route: 048
  3. DEXAMETHASONE [Suspect]
     Active Substance: DEXAMETHASONE
     Indication: Chemotherapy
     Route: 065

REACTIONS (10)
  - Small intestinal obstruction [Unknown]
  - Psoas abscess [Unknown]
  - Wernicke^s encephalopathy [Unknown]
  - Pancreatic leak [None]
  - Pancreatic pseudocyst [Unknown]
  - Intra-abdominal fluid collection [Unknown]
  - Myelosuppression [Unknown]
  - Sepsis [Unknown]
  - Atrioventricular block first degree [Unknown]
  - Off label use [Unknown]
